FAERS Safety Report 7435270-9 (Version None)
Quarter: 2011Q2

REPORT INFORMATION
  Report Type: 
  Country: None (occurrence: None)
  Receive Date: 20110425
  Receipt Date: 20110420
  Transmission Date: 20111010
  Serious: Yes (Other)
  Sender: FDA-Public Use
  Company Number: BR-ABBOTT-11P-020-0707300-00

PATIENT
  Sex: Female
  Weight: 59 kg

DRUGS (11)
  1. EUTHYROX [Concomitant]
     Indication: HYPOTHYROIDISM
     Route: 048
     Dates: start: 20010101
  2. CALCORT [Concomitant]
     Indication: UVEITIS
     Route: 048
  3. METHOTREXATE [Concomitant]
     Indication: ANKYLOSING SPONDYLITIS
     Route: 048
  4. INDERAL [Concomitant]
     Indication: CARDIAC DISORDER
  5. HUMIRA [Suspect]
     Indication: ANKYLOSING SPONDYLITIS
     Route: 058
     Dates: start: 20101126
  6. INDERAL [Concomitant]
     Indication: LONG QT SYNDROME
     Route: 048
     Dates: start: 20080101
  7. VITAMIN D [Concomitant]
     Indication: OSTEOPOROSIS
     Route: 048
     Dates: start: 20090101
  8. UNKNOWN CORTICOID [Concomitant]
     Indication: ANKYLOSING SPONDYLITIS
     Route: 048
  9. CALCIUM TAMBOS [Concomitant]
     Indication: OSTEOPOROSIS
     Route: 048
     Dates: start: 20090101
  10. ACTONEL [Concomitant]
     Indication: OSTEOPOROSIS
     Route: 048
     Dates: start: 20010101
  11. CALCIUM [Concomitant]
     Indication: OSTEOPOROSIS
     Dosage: FORM OF ADMINISTRATION: EFFERVESCENT
     Route: 048
     Dates: start: 20060101

REACTIONS (8)
  - BLINDNESS UNILATERAL [None]
  - OPTIC NEURITIS [None]
  - DIZZINESS [None]
  - HEADACHE [None]
  - UVEITIS [None]
  - VOMITING [None]
  - ABDOMINAL PAIN [None]
  - CHEST PAIN [None]
